FAERS Safety Report 23641847 (Version 2)
Quarter: 2024Q1

REPORT INFORMATION
  Report Type: Report from Study
  Country: DE (occurrence: DE)
  Receive Date: 20240318
  Receipt Date: 20240329
  Transmission Date: 20240409
  Serious: Yes (Hospitalization)
  Sender: FDA-Public Use
  Company Number: DE-Merck Healthcare KGaA-2024013267

PATIENT
  Age: 75 Year
  Sex: Male

DRUGS (19)
  1. AVELUMAB [Suspect]
     Active Substance: AVELUMAB
     Indication: Transitional cell carcinoma
     Dates: start: 20230717
  2. PANTOPRAZOLE [Concomitant]
     Active Substance: PANTOPRAZOLE
     Indication: Prophylaxis
     Route: 048
     Dates: start: 202212
  3. DEXAMETHASONE [Concomitant]
     Active Substance: DEXAMETHASONE
     Indication: Prophylaxis
     Route: 048
     Dates: start: 20230912, end: 20230912
  4. DEXAMETHASONE [Concomitant]
     Active Substance: DEXAMETHASONE
     Route: 048
     Dates: start: 20230913, end: 20230913
  5. DEXAMETHASONE [Concomitant]
     Active Substance: DEXAMETHASONE
     Route: 048
     Dates: start: 20230914, end: 20230916
  6. DEXAMETHASONE [Concomitant]
     Active Substance: DEXAMETHASONE
     Route: 048
     Dates: start: 20230917, end: 20230919
  7. DEXAMETHASONE [Concomitant]
     Active Substance: DEXAMETHASONE
     Route: 048
     Dates: start: 20230920, end: 20230922
  8. LEVETIRACETAM [Concomitant]
     Active Substance: LEVETIRACETAM
     Indication: Prophylaxis
     Route: 048
     Dates: start: 20230927, end: 20231113
  9. LEVETIRACETAM [Concomitant]
     Active Substance: LEVETIRACETAM
     Route: 048
     Dates: start: 20231113, end: 20231118
  10. LEVETIRACETAM [Concomitant]
     Active Substance: LEVETIRACETAM
     Route: 048
     Dates: start: 20231119
  11. ELIQUIS [Concomitant]
     Active Substance: APIXABAN
     Indication: Stent placement
     Route: 048
     Dates: start: 202212
  12. ASPIRIN [Concomitant]
     Active Substance: ASPIRIN
     Indication: Stent placement
     Route: 048
     Dates: start: 202212
  13. METAMIZOLE [Concomitant]
     Active Substance: METAMIZOLE
     Indication: Prophylaxis
     Route: 048
     Dates: start: 202306
  14. XIPAMIDE [Concomitant]
     Active Substance: XIPAMIDE
     Indication: Prophylaxis
     Route: 048
     Dates: start: 202303
  15. XIPAMIDE [Concomitant]
     Active Substance: XIPAMIDE
     Route: 048
     Dates: start: 202303
  16. XIPAMIDE [Concomitant]
     Active Substance: XIPAMIDE
     Route: 048
     Dates: start: 202303
  17. AMPHOTERICIN B [Concomitant]
     Active Substance: AMPHOTERICIN B
     Indication: Prophylaxis
     Route: 048
     Dates: start: 20230912, end: 20230918
  18. PANTOZOL [ERYTHROMYCIN ETHYLSUCCINATE;SULFAFURAZOLE] [Concomitant]
     Indication: Prophylaxis
     Route: 048
     Dates: start: 20230817
  19. LACOSAMID AL [Concomitant]
     Indication: Product used for unknown indication
     Route: 048
     Dates: start: 20231113

REACTIONS (2)
  - Seizure [Recovered/Resolved]
  - Epilepsy [Recovered/Resolved]

NARRATIVE: CASE EVENT DATE: 20231113
